FAERS Safety Report 20495238 (Version 3)
Quarter: 2022Q2

REPORT INFORMATION
  Report Type: Spontaneous
  Country: US (occurrence: US)
  Receive Date: 20220221
  Receipt Date: 20220524
  Transmission Date: 20220721
  Serious: No
  Sender: FDA-Public Use
  Company Number: US-EXELIXIS-CABO-22048985

PATIENT
  Age: 46 Year
  Sex: Male

DRUGS (2)
  1. OPDIVO [Suspect]
     Active Substance: NIVOLUMAB
     Indication: Hepatic cancer
     Route: 065
     Dates: start: 202202
  2. CABOMETYX [Suspect]
     Active Substance: CABOZANTINIB S-MALATE
     Indication: Hepatic cancer
     Route: 048
     Dates: start: 202202

REACTIONS (8)
  - Skin exfoliation [Unknown]
  - Insomnia [Unknown]
  - Impaired healing [Unknown]
  - Nausea [Unknown]
  - Abdominal pain upper [Unknown]
  - Fatigue [Unknown]
  - Vomiting [Unknown]
  - Intentional product use issue [Unknown]

NARRATIVE: CASE EVENT DATE: 20220215
